FAERS Safety Report 11699866 (Version 1)
Quarter: 2015Q4

REPORT INFORMATION
  Report Type: Spontaneous
  Country: US (occurrence: US)
  Receive Date: 20151105
  Receipt Date: 20151105
  Transmission Date: 20160304
  Serious: No
  Sender: FDA-Public Use
  Company Number: US-JNJFOC-20151003108

PATIENT
  Age: 92 Year
  Sex: Male

DRUGS (1)
  1. KETOCONAZOLE. [Suspect]
     Active Substance: KETOCONAZOLE
     Indication: DANDRUFF
     Route: 061

REACTIONS (4)
  - Product label confusion [Unknown]
  - Cognitive disorder [Unknown]
  - Alopecia [Unknown]
  - Dandruff [Unknown]

NARRATIVE: CASE EVENT DATE: 2015
